FAERS Safety Report 15374548 (Version 5)
Quarter: 2019Q3

REPORT INFORMATION
  Report Type: Report from Study
  Country: US (occurrence: US)
  Receive Date: 20180912
  Receipt Date: 20190711
  Transmission Date: 20191004
  Serious: Yes (Other)
  Sender: FDA-Public Use
  Company Number: PHEH2018US037712

PATIENT
  Age: 31 Year
  Sex: Male
  Weight: 53.7 kg

DRUGS (2)
  1. GILENYA [Suspect]
     Active Substance: FINGOLIMOD HYDROCHLORIDE
     Dosage: 0.5 MG, QD
     Route: 048
     Dates: start: 20180919
  2. GILENYA [Suspect]
     Active Substance: FINGOLIMOD HYDROCHLORIDE
     Indication: MULTIPLE SCLEROSIS
     Dosage: 0.5 MG, QD
     Route: 048
     Dates: start: 20170502

REACTIONS (4)
  - Fatigue [Unknown]
  - JC polyomavirus test positive [Unknown]
  - Leukopenia [Recovering/Resolving]
  - Lymphopenia [Unknown]

NARRATIVE: CASE EVENT DATE: 201801
